FAERS Safety Report 4377484-0 (Version None)
Quarter: 2004Q2

REPORT INFORMATION
  Report Type: 
  Country: None (occurrence: None)
  Receive Date: 20040609
  Receipt Date: 20040524
  Transmission Date: 20050107
  Serious: Yes (Death, Hospitalization)
  Sender: FDA-Public Use
  Company Number: EWC040539402

PATIENT
  Sex: Female

DRUGS (2)
  1. OLANZAPINE [Suspect]
  2. OLANZAPINE [Suspect]
     Dosage: 2.5 MG

REACTIONS (5)
  - ASTHENIA [None]
  - CARDIO-RESPIRATORY ARREST [None]
  - GRAND MAL CONVULSION [None]
  - HAEMORRHAGIC STROKE [None]
  - TREMOR [None]
